FAERS Safety Report 15391888 (Version 3)
Quarter: 2018Q4

REPORT INFORMATION
  Report Type: Report from Study
  Country: None (occurrence: US)
  Receive Date: 20180917
  Receipt Date: 20181214
  Transmission Date: 20190204
  Serious: Yes (Other)
  Sender: FDA-Public Use
  Company Number: US-ABBVIE-17K-163-2140411-00

PATIENT
  Age: 60 Year
  Sex: Female

DRUGS (1)
  1. HUMIRA [Suspect]
     Active Substance: ADALIMUMAB
     Indication: HIDRADENITIS
     Route: 058

REACTIONS (13)
  - Bone operation [Recovering/Resolving]
  - Stress [Unknown]
  - Sensitivity to weather change [Not Recovered/Not Resolved]
  - Drug ineffective [Unknown]
  - Sinus pain [Unknown]
  - Lung neoplasm malignant [Recovered/Resolved]
  - Injection site pain [Unknown]
  - Procedural pain [Not Recovered/Not Resolved]
  - Hidradenitis [Recovered/Resolved]
  - Rotator cuff syndrome [Not Recovered/Not Resolved]
  - Neoplasm malignant [Unknown]
  - Fibromyalgia [Unknown]
  - Hidradenitis [Recovering/Resolving]

NARRATIVE: CASE EVENT DATE: 2018
